FAERS Safety Report 9707213 (Version 1)
Quarter: 2013Q4

REPORT INFORMATION
  Report Type: Spontaneous
  Country: IE (occurrence: IE)
  Receive Date: 20131125
  Receipt Date: 20131125
  Transmission Date: 20140711
  Serious: Yes (Other)
  Sender: FDA-Public Use
  Company Number: IE-MYLANLABS-2013S1025725

PATIENT
  Age: 63 Year
  Sex: Female

DRUGS (3)
  1. EPINEPHRINE [Suspect]
     Indication: RESUSCITATION
     Dosage: VIA IV CANNULA ON DORSUM OF LEFT HAND
     Route: 042
  2. NOREPINEPHRINE [Concomitant]
     Route: 050
  3. DOBUTAMINE [Concomitant]
     Route: 050

REACTIONS (3)
  - Injection site extravasation [Recovering/Resolving]
  - Peripheral ischaemia [Recovering/Resolving]
  - Extremity necrosis [Unknown]
